FAERS Safety Report 7127831-1 (Version None)
Quarter: 2010Q4

REPORT INFORMATION
  Report Type: 
  Country: None (occurrence: None)
  Receive Date: 20101029
  Receipt Date: 20100722
  Transmission Date: 20110411
  Serious: Yes (Hospitalization)
  Sender: FDA-Public Use
  Company Number: US-003272

PATIENT
  Sex: Male
  Weight: 67 kg

DRUGS (6)
  1. DEGARELIX 80 MG [Suspect]
     Indication: PROSTATE CANCER
     Dosage: (80 MG 1X/MONTH SUBCUTANEOUS)
     Route: 058
     Dates: start: 20090625, end: 20100624
  2. CARTIA XT [Concomitant]
  3. DITROPAN [Concomitant]
  4. HYDROCHLOROTHIAZIDE [Concomitant]
  5. LISINOPRIL [Concomitant]
  6. ZOCOR [Concomitant]

REACTIONS (1)
  - SYNCOPE [None]
